FAERS Safety Report 19450808 (Version 13)
Quarter: 2021Q4

REPORT INFORMATION
  Report Type: Report from Study
  Country: CA (occurrence: CA)
  Receive Date: 20210622
  Receipt Date: 20211117
  Transmission Date: 20220304
  Serious: Yes (Hospitalization, Other)
  Sender: FDA-Public Use
  Company Number: CA-BRISTOL-MYERS SQUIBB COMPANY-BMS-2021-053086

PATIENT
  Age: 65 Year
  Sex: Female
  Weight: 53 kg

DRUGS (24)
  1. NIVOLUMAB [Suspect]
     Active Substance: NIVOLUMAB
     Indication: Mesothelioma malignant
     Dosage: 170 MILLIGRAM, Q2WK
     Route: 042
     Dates: start: 20210531
  2. NIVOLUMAB [Suspect]
     Active Substance: NIVOLUMAB
     Dosage: 144 MILLIGRAM, Q2WK
     Route: 042
     Dates: start: 20210712
  3. NIVOLUMAB [Suspect]
     Active Substance: NIVOLUMAB
     Dosage: UNK, 2 VIALS
     Route: 065
  4. NIVOLUMAB [Suspect]
     Active Substance: NIVOLUMAB
     Dosage: 156 MILLIGRAM, Q2WK
     Route: 042
     Dates: start: 20210809
  5. NIVOLUMAB [Suspect]
     Active Substance: NIVOLUMAB
     Dosage: 156 MILLIGRAM
     Route: 042
  6. NIVOLUMAB [Suspect]
     Active Substance: NIVOLUMAB
     Dosage: 175 MILLIGRAM, Q2WK
     Route: 042
     Dates: end: 20210907
  7. NIVOLUMAB [Suspect]
     Active Substance: NIVOLUMAB
     Dosage: UNK
     Route: 065
     Dates: start: 20210916
  8. NIVOLUMAB [Suspect]
     Active Substance: NIVOLUMAB
     Dosage: 156 MILLIGRAM Q2WK
     Route: 042
  9. NIVOLUMAB [Suspect]
     Active Substance: NIVOLUMAB
     Dosage: 155 MILLIGRAM, Q2WK
     Route: 042
     Dates: start: 20211015, end: 20211110
  10. YERVOY [Suspect]
     Active Substance: IPILIMUMAB
     Indication: Mesothelioma malignant
     Dosage: 170 MILLIGRAM, Q2WK
     Route: 042
     Dates: start: 20210531
  11. YERVOY [Suspect]
     Active Substance: IPILIMUMAB
     Dosage: 48 MILLIGRAM, Q2WK
     Route: 042
     Dates: start: 20210712
  12. YERVOY [Suspect]
     Active Substance: IPILIMUMAB
     Dosage: UNK, 1 VIAL
     Route: 065
  13. YERVOY [Suspect]
     Active Substance: IPILIMUMAB
     Dosage: UNK
     Route: 065
     Dates: start: 20210809
  14. YERVOY [Suspect]
     Active Substance: IPILIMUMAB
     Dosage: 50 MILLIGRAM
     Route: 042
  15. YERVOY [Suspect]
     Active Substance: IPILIMUMAB
     Dosage: 60 MILLIGRAM, Q6WK
     Route: 042
     Dates: end: 20210907
  16. YERVOY [Suspect]
     Active Substance: IPILIMUMAB
     Dosage: UNK
     Route: 065
     Dates: start: 20210916
  17. YERVOY [Suspect]
     Active Substance: IPILIMUMAB
     Dosage: 50 MILLIGRAM
     Route: 065
     Dates: start: 20211015, end: 20211110
  18. HYDROMORPHONE [Concomitant]
     Active Substance: HYDROMORPHONE
     Indication: Product used for unknown indication
     Dosage: UNK
     Route: 065
  19. LASIX [Concomitant]
     Active Substance: FUROSEMIDE
     Indication: Product used for unknown indication
     Dosage: UNK
     Route: 065
  20. XARELTO [Concomitant]
     Active Substance: RIVAROXABAN
     Indication: Product used for unknown indication
     Dosage: UNK
     Route: 065
  21. PANTOPRAZOLE [Concomitant]
     Active Substance: PANTOPRAZOLE
     Indication: Product used for unknown indication
     Dosage: UNK
     Route: 065
  22. MIRTAZAPINE [Concomitant]
     Active Substance: MIRTAZAPINE
     Indication: Product used for unknown indication
     Dosage: UNK
     Route: 065
  23. FOLIC ACID [Concomitant]
     Active Substance: FOLIC ACID
     Indication: Product used for unknown indication
     Dosage: UNK
     Route: 065
  24. UNSPECIFIED INGREDIENT [Concomitant]
     Active Substance: UNSPECIFIED INGREDIENT
     Indication: Product used for unknown indication
     Dosage: UNK
     Route: 065

REACTIONS (14)
  - Malignant neoplasm progression [Not Recovered/Not Resolved]
  - Pain [Unknown]
  - Seizure [Not Recovered/Not Resolved]
  - Ophthalmoplegia [Not Recovered/Not Resolved]
  - Facial paralysis [Not Recovered/Not Resolved]
  - Monoplegia [Not Recovered/Not Resolved]
  - Chest discomfort [Not Recovered/Not Resolved]
  - Weight decreased [Not Recovered/Not Resolved]
  - Oxygen saturation decreased [Unknown]
  - Heart rate increased [Not Recovered/Not Resolved]
  - Weight increased [Not Recovered/Not Resolved]
  - Blood pressure diastolic decreased [Not Recovered/Not Resolved]
  - Off label use [Not Recovered/Not Resolved]
  - Intentional dose omission [Unknown]

NARRATIVE: CASE EVENT DATE: 20210101
